FAERS Safety Report 6202815-6 (Version None)
Quarter: 2009Q2

REPORT INFORMATION
  Report Type: 
  Country: None (occurrence: None)
  Receive Date: 20090519
  Receipt Date: 20090508
  Transmission Date: 20091009
  Serious: Yes (Other)
  Sender: FDA-Public Use
  Company Number: MOZO-1000201

PATIENT
  Age: 31 Year
  Sex: Male
  Weight: 82 kg

DRUGS (2)
  1. MOZOBIL [Suspect]
     Indication: BURKITT'S LYMPHOMA
     Dosage: 21024 MCG
     Dates: start: 20080922, end: 20080922
  2. MOZOBIL [Suspect]
     Indication: HAEMATOPOIETIC STEM CELL MOBILISATION
     Dosage: 21024 MCG
     Dates: start: 20080922, end: 20080922

REACTIONS (3)
  - BLOOD STEM CELL TRANSPLANT FAILURE [None]
  - FEBRILE NEUTROPENIA [None]
  - PLATELET COUNT DECREASED [None]
